FAERS Safety Report 9955175 (Version 2)
Quarter: 2014Q1

REPORT INFORMATION
  Report Type: Spontaneous
  Country: US (occurrence: US)
  Receive Date: 20140304
  Receipt Date: 20140304
  Transmission Date: 20141002
  Serious: No
  Sender: FDA-Public Use
  Company Number: US-ABBVIE-12P-163-0993932-00

PATIENT
  Age: 22 Year
  Sex: Female

DRUGS (4)
  1. HUMIRA [Suspect]
     Indication: CROHN^S DISEASE
     Dates: start: 2010
  2. PRENATAL VITAMINS [Concomitant]
     Indication: VITAMIN SUPPLEMENTATION
     Dosage: STARTED AT 6 WEEKS
  3. PRENATAL VITAMINS [Concomitant]
     Indication: PREGNANCY
  4. IRON [Concomitant]
     Indication: MINERAL SUPPLEMENTATION
     Dosage: ALL PREGNANCY

REACTIONS (1)
  - Upper respiratory tract infection [Recovered/Resolved]
